FAERS Safety Report 20643664 (Version 3)
Quarter: 2022Q2

REPORT INFORMATION
  Report Type: Spontaneous
  Country: DE (occurrence: DE)
  Receive Date: 20220328
  Receipt Date: 20220503
  Transmission Date: 20220721
  Serious: Yes (Hospitalization, Other)
  Sender: FDA-Public Use
  Company Number: None

PATIENT
  Age: 55 Year
  Sex: Female
  Weight: 86 kg

DRUGS (6)
  1. AMLODIPINE [Suspect]
     Active Substance: AMLODIPINE BESYLATE
     Indication: Hypertension
     Dosage: 10 MG, QD (DAILY DOSE: 10 MG MILLGRAM(S) EVERY DAYS 2 SEPARATED)
     Route: 048
  2. CAFFEINE\DIPHENHYDRAMINE\HEXETYLAMINE\PROPYPHENAZONE\SALICYLAMIDE [Suspect]
     Active Substance: CAFFEINE\DIPHENHYDRAMINE\HEXETYLAMINE\PROPYPHENAZONE\SALICYLAMIDE
     Indication: Product used for unknown indication
     Dosage: 2 DOSAGE FORM, QD (DAILY DOSE: 2 DF DOSAGE FORM EVERY DAYS 2 SEPARATED)
     Route: 048
  3. CAFFEINE\DIPHENHYDRAMINE\HEXETYLAMINE\PROPYPHENAZONE\SALICYLAMIDE [Suspect]
     Active Substance: CAFFEINE\DIPHENHYDRAMINE\HEXETYLAMINE\PROPYPHENAZONE\SALICYLAMIDE
     Dosage: 2 DOSAGE FORM, QD (DAILY DOSE: 2 DF DOSAGE FORM EVERY DAYS 2 SEPARATED DOSES)
     Route: 048
     Dates: start: 20211227
  4. SALAGEN [Concomitant]
     Active Substance: PILOCARPINE HYDROCHLORIDE
     Indication: Sjogren^s syndrome
     Dosage: 10 MG (DAILY DOSE: 10 MG MILLGRAM(S) EVERY DAYS 2 SEPARATED DOSES)
     Route: 048
  5. BISOPROLOL [Concomitant]
     Active Substance: BISOPROLOL
     Indication: Hypertension
     Dosage: DAILY DOSE: 5 MG MILLGRAM(S) EVERY DAYS
     Route: 048
  6. BISOPROLOL [Concomitant]
     Active Substance: BISOPROLOL
     Indication: Hypertension
     Dosage: DAILY DOSE: 5 MG MILLGRAM(S) EVERY DAYS
     Route: 048

REACTIONS (1)
  - Hepatitis toxic [Recovered/Resolved]

NARRATIVE: CASE EVENT DATE: 20220121
